FAERS Safety Report 8593370-4 (Version None)
Quarter: 2012Q3

REPORT INFORMATION
  Report Type: 
  Country: None (occurrence: None)
  Receive Date: 20120814
  Receipt Date: 20120810
  Transmission Date: 20120928
  Serious: No
  Sender: FDA-Public Use
  Company Number: US-PFIZER INC-2012195984

PATIENT
  Age: 63 Year
  Sex: Female
  Weight: 83.9 kg

DRUGS (11)
  1. HYDROCHLOROTHIAZIDE [Concomitant]
     Dosage: UNK
  2. LOVAZA [Concomitant]
     Dosage: FOUR TABLETS
  3. TRICOR [Concomitant]
     Indication: BLOOD TRIGLYCERIDES INCREASED
     Dosage: UNK
  4. VITAMIN E [Concomitant]
     Dosage: 400 UNITS
  5. ASPIRIN [Concomitant]
     Dosage: UNK
  6. VITAMIN D [Concomitant]
     Dosage: UNK
  7. LYRICA [Suspect]
     Dosage: 75 MG, 3X/DAY
     Route: 048
  8. MULTI-VITAMINS [Concomitant]
     Dosage: UNK
  9. LYRICA [Suspect]
     Indication: FIBROMYALGIA
     Dosage: 25 MG, 1X/DAY
     Route: 048
     Dates: start: 20110401
  10. LYRICA [Suspect]
     Dosage: 25 MG, 1X/DAY
     Route: 048
  11. XYZAL [Concomitant]
     Indication: HYPERSENSITIVITY
     Dosage: 5 MG, 1X/DAY

REACTIONS (6)
  - HYPERSENSITIVITY [None]
  - MEMORY IMPAIRMENT [None]
  - HYPOTHYROIDISM [None]
  - URTICARIA [None]
  - VISION BLURRED [None]
  - WEIGHT INCREASED [None]
